FAERS Safety Report 5319383-3 (Version None)
Quarter: 2007Q2

REPORT INFORMATION
  Report Type: 
  Country: None (occurrence: None)
  Receive Date: 20070508
  Receipt Date: 20070502
  Transmission Date: 20071010
  Serious: Yes (Hospitalization)
  Sender: FDA-Public Use
  Company Number: US-ELI_LILLY_AND_COMPANY-US200703000101

PATIENT
  Age: 61 Year
  Sex: Female
  Weight: 92.063 kg

DRUGS (11)
  1. BYETTA [Suspect]
     Indication: DIABETES MELLITUS NON-INSULIN-DEPENDENT
     Dosage: 10 UG, 2/D
     Route: 058
     Dates: start: 20070207
  2. BYETTA [Suspect]
     Dosage: 5 UG, 2/D
     Route: 058
     Dates: start: 20070110, end: 20070206
  3. BYETTA [Suspect]
     Dosage: 5 UG, 2/D
     Route: 058
     Dates: start: 20060331, end: 20061001
  4. GLYBURIDE [Concomitant]
     Dates: start: 19970101
  5. ACTOS [Concomitant]
     Dates: start: 19970101
  6. GLUCOPHAGE [Concomitant]
     Dates: start: 19970101
  7. PLAVIX [Concomitant]
  8. ZETIA [Concomitant]
  9. CRESTOR [Concomitant]
  10. COREG [Concomitant]
  11. QUINAPRIL AND HYDROCHLOROTHIAZIDE [Concomitant]

REACTIONS (4)
  - CLOSTRIDIAL INFECTION [None]
  - COLITIS [None]
  - DECREASED APPETITE [None]
  - NAUSEA [None]
